FAERS Safety Report 8396879-1 (Version None)
Quarter: 2012Q2

REPORT INFORMATION
  Report Type: 
  Country: None (occurrence: None)
  Receive Date: 20120530
  Receipt Date: 20120503
  Transmission Date: 20120825
  Serious: No
  Sender: FDA-Public Use
  Company Number: US-BAYER-2012-048851

PATIENT

DRUGS (2)
  1. ALEVE (CAPLET) [Suspect]
     Indication: EAR PAIN
     Route: 048
  2. ALEVE (CAPLET) [Suspect]
     Indication: HEADACHE

REACTIONS (2)
  - EAR PAIN [None]
  - HEADACHE [None]
